FAERS Safety Report 9725507 (Version 1)
Quarter: 2013Q4

REPORT INFORMATION
  Report Type: Spontaneous
  Country: DE (occurrence: DE)
  Receive Date: 20131203
  Receipt Date: 20131203
  Transmission Date: 20140711
  Serious: Yes (Other)
  Sender: FDA-Public Use
  Company Number: GXKR2013DE003682

PATIENT
  Sex: 0

DRUGS (4)
  1. DICLOFENAC [Suspect]
     Indication: RHEUMATOID ARTHRITIS
     Dosage: 225 [ MG/D ]/ 2-3 X 75 MG, GW 0-39
     Route: 048
  2. THYROXIN [Concomitant]
     Indication: HYPOTHYROIDISM
     Dosage: 100 [?G/D (-75) ]/ 75 -100 ?G/D, GW 0-39
     Route: 048
  3. PREDNISOLON [Concomitant]
     Indication: RHEUMATOID ARTHRITIS
     Dosage: 5 [MG/D ], GW 0-5
     Route: 048
  4. RANITIDIN [Concomitant]
     Indication: GASTRITIS
     Dosage: GW 0-39
     Route: 065

REACTIONS (1)
  - Oligohydramnios [Recovered/Resolved]
